FAERS Safety Report 14655267 (Version 1)
Quarter: 2018Q1

REPORT INFORMATION
  Report Type: Spontaneous
  Country: US (occurrence: US)
  Receive Date: 20180319
  Receipt Date: 20180319
  Transmission Date: 20180509
  Serious: Yes (Other)
  Sender: FDA-Public Use
  Company Number: US-COVIS PHARMA B.V.-2018COV00172

PATIENT
  Age: 52 Year
  Sex: Male

DRUGS (1)
  1. DIGOXIN. [Suspect]
     Active Substance: DIGOXIN
     Dosage: 0.4 MG, UNK
     Route: 037

REACTIONS (4)
  - Paralysis [Recovered/Resolved]
  - Toxicity to various agents [Recovering/Resolving]
  - Accidental exposure to product [Recovered/Resolved]
  - Dyspnoea [Recovered/Resolved]
